FAERS Safety Report 9859591 (Version 2)
Quarter: 2014Q1

REPORT INFORMATION
  Report Type: Spontaneous
  Country: DE (occurrence: DE)
  Receive Date: 20140131
  Receipt Date: 20140320
  Transmission Date: 20141002
  Serious: Yes (Hospitalization)
  Sender: FDA-Public Use
  Company Number: PHHY2014DE009241

PATIENT
  Age: 73 Year
  Sex: Female
  Weight: 70 kg

DRUGS (17)
  1. HYDROCHLOROTHIAZIDE [Suspect]
     Indication: DIURETIC THERAPY
     Dosage: 12.5 MG, DAILY
     Route: 048
  2. VENLAFAXINE [Suspect]
     Indication: DEPRESSION
     Dosage: 37.5 MG, BID
     Route: 048
  3. SEROQUEL [Concomitant]
     Dosage: 300 MG, QD
     Route: 048
  4. SEROQUEL [Concomitant]
     Dosage: 200 MG, QD
     Route: 048
  5. VALDOXAN [Concomitant]
     Dosage: 25 MG, DAILY
     Route: 048
  6. VALDOXAN [Concomitant]
     Dosage: 25 MG, QD
  7. OMEPRAZOL [Concomitant]
     Dosage: 20 MG, DAILY
     Route: 048
  8. SPIRONOLACTON [Concomitant]
     Dosage: 25 MG, DAILY
     Route: 048
  9. SPIRONOLACTON [Concomitant]
     Dosage: 50 MG, UNK
  10. LORZAAR [Concomitant]
     Dosage: UNK UKN, UNK
     Route: 048
  11. LORZAAR [Concomitant]
     Dosage: 50 MG, QD
  12. ZOP [Concomitant]
     Dosage: 7.5 MG, UNK
     Route: 048
  13. SIMVASTATIN [Concomitant]
     Dosage: 10 MG, DAILY
     Route: 048
  14. SIMVASTATIN [Concomitant]
     Dosage: 20 MG, QD
  15. PANTOZOL [Concomitant]
     Dosage: 40 MG, QD
  16. LORZAAR PLUS [Concomitant]
     Dosage: 1 DF (50 MG HYDR/ 12.5 MG LOSA), BID
  17. BISOPROLOL [Concomitant]
     Dosage: 5 MG, QD

REACTIONS (2)
  - Inappropriate antidiuretic hormone secretion [Recovering/Resolving]
  - Hyponatraemia [Recovering/Resolving]
